FAERS Safety Report 10200427 (Version 1)
Quarter: 2014Q2

REPORT INFORMATION
  Report Type: Spontaneous
  Country: US (occurrence: US)
  Receive Date: 20140528
  Receipt Date: 20140528
  Transmission Date: 20141212
  Serious: Yes (Other)
  Sender: FDA-Public Use
  Company Number: PHHY2014US060243

PATIENT
  Age: 58 Year
  Sex: Male

DRUGS (1)
  1. LEVODOPA+CARBIDOPA [Suspect]
     Indication: PARKINSON^S DISEASE

REACTIONS (2)
  - Extraskeletal ossification [Unknown]
  - Dyskinesia [Unknown]
